FAERS Safety Report 4932322-X (Version None)
Quarter: 2006Q1

REPORT INFORMATION
  Report Type: 
  Country: None (occurrence: None)
  Receive Date: 20060301
  Receipt Date: 20060215
  Transmission Date: 20060701
  Serious: Yes (Hospitalization)
  Sender: FDA-Public Use
  Company Number: 13550

PATIENT
  Age: 24 Month
  Sex: Female

DRUGS (4)
  1. METHOTREXATE [Suspect]
     Indication: JUVENILE ARTHRITIS
     Dosage: 5 MG WEEKLY, PO
     Route: 048
     Dates: start: 20050207, end: 20060101
  2. METHOTREXATE [Suspect]
     Indication: JUVENILE ARTHRITIS
     Dosage: 5 MG WEEKLY, SC
     Route: 058
     Dates: start: 20060101
  3. IBUPROFEN [Concomitant]
  4. PREDNISOLONE [Concomitant]

REACTIONS (9)
  - ANOREXIA [None]
  - BODY TEMPERATURE DECREASED [None]
  - CONDITION AGGRAVATED [None]
  - COUGH [None]
  - EAR INFECTION [None]
  - NIGHT SWEATS [None]
  - PHARYNGOLARYNGEAL PAIN [None]
  - PNEUMONIA MYCOPLASMAL [None]
  - RHINORRHOEA [None]
